FAERS Safety Report 9226068 (Version 5)
Quarter: 2013Q4

REPORT INFORMATION
  Report Type: Spontaneous
  Country: US (occurrence: US)
  Receive Date: 20130411
  Receipt Date: 20131007
  Transmission Date: 20140711
  Serious: Yes (Hospitalization, Other)
  Sender: FDA-Public Use
  Company Number: US-009507513-1207USA00013

PATIENT
  Sex: Female
  Weight: 61.22 kg

DRUGS (7)
  1. FOSAMAX [Suspect]
     Indication: OSTEOPOROSIS
     Dosage: 10 MG, QD
     Route: 048
     Dates: start: 19961114, end: 20010208
  2. FOSAMAX [Suspect]
     Dosage: 70 MG, QW
     Route: 048
     Dates: start: 20010426
  3. ALENDRONATE SODIUM [Suspect]
     Indication: OSTEOPOROSIS
     Dosage: 70 MG, QW
     Dates: start: 20090106, end: 20110412
  4. CALCIUM (UNSPECIFIED) [Concomitant]
     Dosage: 500 MG, TID
  5. VITAMINS (UNSPECIFIED) [Concomitant]
     Dosage: 1500 MG, QD WITH FOOD
     Route: 048
  6. OMEGA-3 MARINE TRIGLYCERIDES [Concomitant]
     Dosage: 1000 MG, BID
  7. VITAMIN D (UNSPECIFIED) [Concomitant]
     Dosage: 2000 IU, QD

REACTIONS (24)
  - Intramedullary rod insertion [Unknown]
  - Intramedullary rod insertion [Unknown]
  - Myocardial infarction [Unknown]
  - Femur fracture [Recovered/Resolved]
  - Femur fracture [Recovered/Resolved]
  - Impaired healing [Recovered/Resolved]
  - Hypothyroidism [Unknown]
  - Hypertension [Unknown]
  - Hypercholesterolaemia [Unknown]
  - Scoliosis [Unknown]
  - Benign neoplasm of thyroid gland [Unknown]
  - Musculoskeletal stiffness [Unknown]
  - Body height decreased [Unknown]
  - Spinal compression fracture [Unknown]
  - Hyperthyroidism [Unknown]
  - Coronary artery disease [Unknown]
  - Cataract [Unknown]
  - Fall [Unknown]
  - Osteoarthritis [Unknown]
  - Bone disorder [Unknown]
  - Injection site pain [Unknown]
  - Arthralgia [Unknown]
  - Pain in extremity [Unknown]
  - Musculoskeletal pain [Unknown]
